FAERS Safety Report 8477400-6 (Version None)
Quarter: 2012Q2

REPORT INFORMATION
  Report Type: 
  Country: None (occurrence: None)
  Receive Date: 20120629
  Receipt Date: 20120619
  Transmission Date: 20120825
  Serious: Yes (Hospitalization)
  Sender: FDA-Public Use
  Company Number: JP-NOVOPROD-351554

PATIENT
  Age: 85 Year
  Sex: Female
  Weight: 53 kg

DRUGS (16)
  1. HUMATROPE [Suspect]
     Indication: GROWTH HORMONE DEFICIENCY
     Dosage: 0.1 MG, QD
     Route: 058
     Dates: start: 20071221, end: 20091221
  2. ALDACTONE [Concomitant]
     Indication: CARDIAC FAILURE CONGESTIVE
     Dosage: 25 MG, QD
     Route: 048
  3. CORTRIL                            /00028601/ [Concomitant]
     Dosage: 20 MG, QD
     Route: 048
  4. ZOLPIDEM [Concomitant]
     Indication: INSOMNIA
     Dosage: 10 MG, QD
     Route: 048
  5. NORDITROPIN [Suspect]
     Indication: GROWTH HORMONE DEFICIENCY
     Dosage: 0.1 MG, QD
     Route: 058
     Dates: start: 20091221, end: 20120503
  6. LEVOTHYROXINE SODIUM [Concomitant]
     Dosage: 50 A?G, QD
     Route: 048
  7. DIOVAN [Concomitant]
     Indication: MYOCARDIAL INFARCTION
     Dosage: 80 MG, QD
     Route: 048
  8. KARY UNI                           /00528801/ [Concomitant]
     Indication: CATARACT
     Dosage: OPHTHALMIC
  9. LASIX [Concomitant]
     Indication: CARDIAC FAILURE CONGESTIVE
     Dosage: 20 MG, QD
     Route: 048
  10. LOXONIN [Concomitant]
     Indication: BACK PAIN
     Dosage: 60 MG, QD
     Route: 048
  11. MEILAX [Concomitant]
     Dosage: 1 MG, QD
     Route: 048
  12. NORDITROPIN [Suspect]
     Dosage: UNK
     Route: 058
     Dates: start: 20120507
  13. ALLOPURINOL [Concomitant]
     Indication: HYPERURICAEMIA
     Dosage: 50 MG, QD
     Route: 048
  14. SIGMART [Concomitant]
     Dosage: 15 MG, QD
     Route: 048
  15. RABEPRAZOLE SODIUM [Concomitant]
     Dosage: 20 MG, QD
     Route: 048
  16. RISPERDAL [Concomitant]
     Dosage: 0.5 MG, QD
     Route: 048

REACTIONS (2)
  - BENIGN MESENTERIC NEOPLASM [None]
  - NEOPLASM PROGRESSION [None]
